FAERS Safety Report 7235752-9 (Version None)
Quarter: 2011Q1

REPORT INFORMATION
  Report Type: 
  Country: None (occurrence: None)
  Receive Date: 20110120
  Receipt Date: 20101222
  Transmission Date: 20110831
  Serious: Yes (Death, Other)
  Sender: FDA-Public Use
  Company Number: PHHY2010JP88945

PATIENT
  Sex: Male

DRUGS (11)
  1. VILDAGLIPTIN [Concomitant]
     Indication: DIABETES MELLITUS
     Dosage: 50 MG, UNK
     Route: 048
  2. AFINITOR [Suspect]
     Indication: RENAL CELL CARCINOMA
     Dosage: 10 MG, QD
     Route: 048
     Dates: start: 20101026, end: 20101105
  3. AFINITOR [Suspect]
     Dosage: 5 MG, QD
     Route: 048
     Dates: start: 20101113, end: 20101117
  4. FERROUS CITRATE [Concomitant]
     Indication: DIABETES MELLITUS
     Dosage: 50 MG, UNK
     Route: 048
  5. OMEPRAL [Concomitant]
     Indication: DIABETES MELLITUS
     Dosage: 20 MG, UNK
     Route: 048
  6. LUPRAC [Concomitant]
     Indication: DIABETES MELLITUS
     Dosage: 8 MG, UNK
     Route: 048
  7. AFINITOR [Suspect]
     Dosage: 7.5 MG, QD
     Route: 048
     Dates: start: 20101118
  8. INTERFERON ALFA [Concomitant]
     Dosage: UNK
     Route: 042
     Dates: start: 20100922, end: 20101018
  9. NU-LOTAN [Concomitant]
     Indication: DIABETES MELLITUS
     Dosage: 50 MG, UNK
     Route: 048
  10. AMLODIPINE [Concomitant]
     Indication: DIABETES MELLITUS
     Dosage: 2.5 MG, UNK
     Route: 048
  11. AZUNOL [Concomitant]
     Dosage: 4%

REACTIONS (3)
  - BLOOD CREATININE INCREASED [None]
  - NEOPLASM MALIGNANT [None]
  - DEATH [None]
